FAERS Safety Report 5959382-1 (Version None)
Quarter: 2008Q4

REPORT INFORMATION
  Report Type: 
  Country: None (occurrence: None)
  Receive Date: 20081120
  Receipt Date: 20081111
  Transmission Date: 20090506
  Serious: Yes (Other)
  Sender: FDA-Public Use
  Company Number: US-ALLERGAN-0814445US

PATIENT
  Sex: Male

DRUGS (6)
  1. BRIMONIDINE 0.1% SOL W/ PURITE [Suspect]
     Indication: OCULAR HYPERTENSION
     Dosage: 1 GTT, BID
     Route: 047
     Dates: start: 20070324, end: 20070516
  2. BRIMONIDINE 0.1% SOL W/ PURITE [Suspect]
     Dosage: 1 GTT, BID
     Route: 047
     Dates: start: 20070523
  3. APRACLONIDINE [Suspect]
     Indication: OCULAR HYPERTENSION
     Dosage: 1 GTT, SINGLE
     Route: 047
     Dates: start: 20070324, end: 20070324
  4. TRAVOPROST [Suspect]
     Indication: OCULAR HYPERTENSION
     Dosage: 1 GTT, SINGLE
     Route: 047
     Dates: start: 20070324, end: 20070324
  5. TRAVOPROST [Suspect]
     Dosage: 1 GTT, QHS
     Route: 047
     Dates: start: 20070324, end: 20070516
  6. TRAVOPROST [Suspect]
     Dosage: 1 GTT, QHS
     Route: 047
     Dates: start: 20070523, end: 20070910

REACTIONS (9)
  - CHORIORETINAL DISORDER [None]
  - MACULAR DEGENERATION [None]
  - MACULAR OEDEMA [None]
  - MACULOPATHY [None]
  - RETINAL DETACHMENT [None]
  - RETINAL PIGMENT EPITHELIOPATHY [None]
  - VISION BLURRED [None]
  - VISUAL ACUITY REDUCED [None]
  - VITREOUS PROLAPSE [None]
